FAERS Safety Report 9487576 (Version 1)
Quarter: 2013Q3

REPORT INFORMATION
  Report Type: Spontaneous
  Country: DE (occurrence: DE)
  Receive Date: 20130829
  Receipt Date: 20130829
  Transmission Date: 20140515
  Serious: Yes (Other)
  Sender: FDA-Public Use
  Company Number: DE-BRISTOL-MYERS SQUIBB COMPANY-19216662

PATIENT
  Sex: Male

DRUGS (7)
  1. ELIQUIS [Suspect]
     Dosage: TABLET
     Dates: start: 201307
  2. METOPROLOL SUCCINATE [Concomitant]
  3. ELTROXIN [Concomitant]
  4. SPIRONOLACTONE [Concomitant]
  5. TERAZOSIN [Concomitant]
  6. RAMIPRIL [Concomitant]
  7. ALLOPURINOL [Concomitant]

REACTIONS (1)
  - Thrombocytopenia [Unknown]
